FAERS Safety Report 8804803 (Version 2)
Quarter: 2013Q1

REPORT INFORMATION
  Report Type: Report from Study
  Country: US (occurrence: US)
  Receive Date: 20120924
  Receipt Date: 20130321
  Transmission Date: 20140127
  Serious: Yes (Death)
  Sender: FDA-Public Use
  Company Number: US-ABBOTT-12P-163-0984279-00

PATIENT
  Age: 41 Year
  Sex: Female
  Weight: 61 kg

DRUGS (1)
  1. HUMIRA [Suspect]
     Indication: RHEUMATOID ARTHRITIS
     Route: 058
     Dates: start: 200509

REACTIONS (8)
  - Multi-organ failure [Fatal]
  - White blood cell count decreased [Fatal]
  - Sepsis [Fatal]
  - Urosepsis [Fatal]
  - Headache [Unknown]
  - Urinary tract infection [Unknown]
  - Pyelonephritis [Unknown]
  - Dyspnoea [Unknown]
